FAERS Safety Report 7219459-X (Version None)
Quarter: 2011Q1

REPORT INFORMATION
  Report Type: 
  Country: None (occurrence: None)
  Receive Date: 20110103
  Receipt Date: 20101222
  Transmission Date: 20110831
  Serious: Yes (Other)
  Sender: FDA-Public Use
  Company Number: 2010P1003440

PATIENT
  Age: 68 Year
  Sex: Male
  Weight: 86.1834 kg

DRUGS (3)
  1. COLCHICINE [Suspect]
     Indication: GOUT
     Dosage: ;PRN;
     Dates: start: 20070101, end: 20080101
  2. METOPROLOL [Concomitant]
  3. PRILOSEC (OMEPRAZOLE) [Concomitant]

REACTIONS (2)
  - SPINAL FRACTURE [None]
  - FALL [None]
